FAERS Safety Report 10484348 (Version 1)
Quarter: 2014Q3

REPORT INFORMATION
  Report Type: Report from Study
  Country: CA (occurrence: CA)
  Receive Date: 20140930
  Receipt Date: 20140930
  Transmission Date: 20150326
  Serious: Yes (Other)
  Sender: FDA-Public Use
  Company Number: CA-JNJFOC-20140923502

PATIENT
  Sex: Female
  Weight: 100 kg

DRUGS (4)
  1. REMICADE [Suspect]
     Active Substance: INFLIXIMAB
     Indication: RHEUMATOID ARTHRITIS
     Route: 042
     Dates: start: 2006
  2. REMICADE [Suspect]
     Active Substance: INFLIXIMAB
     Indication: RHEUMATOID ARTHRITIS
     Route: 042
     Dates: start: 20140923
  3. REMICADE [Suspect]
     Active Substance: INFLIXIMAB
     Indication: IRITIS
     Route: 042
     Dates: start: 20140923
  4. REMICADE [Suspect]
     Active Substance: INFLIXIMAB
     Indication: IRITIS
     Route: 042
     Dates: start: 2006

REACTIONS (6)
  - Visual impairment [Unknown]
  - Eye swelling [Unknown]
  - Off label use [Unknown]
  - Stress [Unknown]
  - Hypertension [Unknown]
  - Blindness unilateral [Unknown]
